FAERS Safety Report 15143609 (Version 1)
Quarter: 2018Q3

REPORT INFORMATION
  Report Type: Spontaneous
  Country: US (occurrence: US)
  Receive Date: 20180618
  Receipt Date: 20180618
  Transmission Date: 20181010
  Serious: Yes (Death)
  Sender: FDA-Public Use
  Company Number: None

PATIENT
  Age: 79 Year
  Sex: Male

DRUGS (1)
  1. DOFETILIDE 25MG MAYNE [Suspect]
     Active Substance: DOFETILIDE
     Indication: ILL-DEFINED DISORDER
     Route: 048
     Dates: start: 20150603, end: 20180307

REACTIONS (1)
  - Death [None]

NARRATIVE: CASE EVENT DATE: 20180307
